FAERS Safety Report 12713852 (Version 2)
Quarter: 2017Q1

REPORT INFORMATION
  Report Type: Spontaneous
  Country: FR (occurrence: FR)
  Receive Date: 20160905
  Receipt Date: 20170330
  Transmission Date: 20170428
  Serious: Yes (Other)
  Sender: FDA-Public Use
  Company Number: FR-ROCHE-1824949

PATIENT
  Age: 76 Year
  Sex: Female

DRUGS (9)
  1. BACTRIM [Suspect]
     Active Substance: SULFAMETHOXAZOLE\TRIMETHOPRIM
     Indication: OPPORTUNISTIC INFECTION PROPHYLAXIS
     Route: 048
     Dates: start: 20160720, end: 20160812
  2. LEVOTHYROX [Concomitant]
     Active Substance: LEVOTHYROXINE
  3. PRIVIGEN [Concomitant]
     Active Substance: HUMAN IMMUNOGLOBULIN G
     Indication: HYPOGAMMAGLOBULINAEMIA
     Dosage: SINGLE DOSE
     Route: 065
     Dates: start: 20160720
  4. INEXIUM [Concomitant]
     Active Substance: ESOMEPRAZOLE
  5. FASTURTEC [Concomitant]
     Active Substance: RASBURICASE
     Dosage: SINGLE DOSE
     Route: 042
     Dates: start: 20160718
  6. ZELITREX [Concomitant]
     Active Substance: VALACYCLOVIR HYDROCHLORIDE
     Indication: OPPORTUNISTIC INFECTION PROPHYLAXIS
     Route: 048
     Dates: start: 20160720
  7. FOLINORAL [Concomitant]
     Active Substance: LEUCOVORIN CALCIUM
  8. MABTHERA [Suspect]
     Active Substance: RITUXIMAB
     Indication: CHRONIC LYMPHOCYTIC LEUKAEMIA
     Route: 042
     Dates: start: 20160718, end: 20160719
  9. LEVACT (FRANCE) [Suspect]
     Active Substance: BENDAMUSTINE HYDROCHLORIDE
     Indication: CHRONIC LYMPHOCYTIC LEUKAEMIA
     Route: 042
     Dates: start: 20160719, end: 20160720

REACTIONS (3)
  - Pruritus generalised [Recovering/Resolving]
  - Eosinophilia [Not Recovered/Not Resolved]
  - Rash maculo-papular [Recovering/Resolving]

NARRATIVE: CASE EVENT DATE: 20160811
